FAERS Safety Report 8270102-0 (Version None)
Quarter: 2012Q2

REPORT INFORMATION
  Report Type: 
  Country: None (occurrence: None)
  Receive Date: 20120410
  Receipt Date: 20120329
  Transmission Date: 20120825
  Serious: Yes (Hospitalization, Other)
  Sender: FDA-Public Use
  Company Number: PHHY2008DE11453

PATIENT
  Sex: Male
  Weight: 77 kg

DRUGS (4)
  1. GLEEVEC [Suspect]
     Dosage: 400 MG, QD
     Route: 048
     Dates: start: 20071210, end: 20080617
  2. SUNITINIB MALATE [Concomitant]
     Dosage: 50 MG, UNK
  3. GLEEVEC [Suspect]
     Indication: GASTROINTESTINAL STROMAL TUMOUR
     Route: 048
     Dates: start: 20070717
  4. CERTICAN [Concomitant]
     Dosage: 2 MG, UNK

REACTIONS (11)
  - ILEUS [None]
  - HEPATITIS [None]
  - NEOPLASM PROGRESSION [None]
  - ASPARTATE AMINOTRANSFERASE INCREASED [None]
  - TRANSAMINASES INCREASED [None]
  - GAMMA-GLUTAMYLTRANSFERASE INCREASED [None]
  - ALANINE AMINOTRANSFERASE INCREASED [None]
  - HEPATIC STEATOSIS [None]
  - NEOPLASM MALIGNANT [None]
  - HEPATIC FIBROSIS [None]
  - HEPATIC NECROSIS [None]
